FAERS Safety Report 8885424 (Version 1)
Quarter: 2012Q4

REPORT INFORMATION
  Report Type: 
  Country: US (occurrence: US)
  Receive Date: 20121102
  Receipt Date: 20121102
  Transmission Date: 20130627
  Serious: Yes (Other)
  Sender: FDA-Public Use
  Company Number: US-BAXTER-2012BAX022442

PATIENT

DRUGS (1)
  1. CYTOXAN? (CYCLOPHOSPHAMIDE FOR INJECTION, USP) [Suspect]
     Indication: LYMPHOBLASTIC LYMPHOMA
     Dosage: 3 G/M2
     Route: 065

REACTIONS (1)
  - Ewing^s sarcoma [Unknown]
